FAERS Safety Report 6558684-8 (Version None)
Quarter: 2010Q1

REPORT INFORMATION
  Report Type: 
  Country: None (occurrence: None)
  Receive Date: 20100129
  Receipt Date: 20100119
  Transmission Date: 20100710
  Serious: Yes (Other)
  Sender: FDA-Public Use
  Company Number: CA-JNJCH-2010001872

PATIENT
  Sex: Male

DRUGS (1)
  1. ROLAIDS TAB [Suspect]
     Indication: DYSPEPSIA
     Dosage: TEXT:UNSPECIFIED
     Route: 048

REACTIONS (4)
  - BURNING SENSATION [None]
  - CONDITION AGGRAVATED [None]
  - DYSPEPSIA [None]
  - GASTROINTESTINAL DISORDER [None]
